FAERS Safety Report 16450238 (Version 1)
Quarter: 2019Q2

REPORT INFORMATION
  Report Type: Spontaneous
  Country: AT (occurrence: AT)
  Receive Date: 20190619
  Receipt Date: 20190619
  Transmission Date: 20190711
  Serious: Yes (Other)
  Sender: FDA-Public Use
  Company Number: AT-GLAXOSMITHKLINE-AT2019094137

PATIENT
  Age: 68 Year
  Sex: Female

DRUGS (6)
  1. URBASON [Suspect]
     Active Substance: METHYLPREDNISOLONE
     Indication: PSORIASIS
     Dosage: 40 MG, UNK
     Route: 065
  2. DICLOFENAC [Suspect]
     Active Substance: DICLOFENAC
     Indication: PSORIASIS
     Dosage: 100 MG, UNK
     Route: 065
  3. DICLOFENAC [Suspect]
     Active Substance: DICLOFENAC
     Indication: ENTHESOPATHY
  4. DICLOFENAC [Suspect]
     Active Substance: DICLOFENAC
     Indication: ARTHRITIS
  5. URBASON [Suspect]
     Active Substance: METHYLPREDNISOLONE
     Indication: ARTHRITIS
     Dosage: 5 MG, UNK
     Route: 065
  6. URBASON [Suspect]
     Active Substance: METHYLPREDNISOLONE
     Indication: ENTHESOPATHY
     Dosage: 5 MG, UNK
     Route: 065

REACTIONS (12)
  - Musculoskeletal stiffness [Unknown]
  - Pain [Unknown]
  - Inflammation [Unknown]
  - Skin disorder [Unknown]
  - Mobility decreased [Unknown]
  - Arthralgia [Unknown]
  - Enthesopathy [Unknown]
  - Disease recurrence [Unknown]
  - Psoriatic arthropathy [Unknown]
  - Arthropathy [Unknown]
  - Drug intolerance [Unknown]
  - Drug ineffective [Unknown]

NARRATIVE: CASE EVENT DATE: 2015
